FAERS Safety Report 21561298 (Version 5)
Quarter: 2022Q4

REPORT INFORMATION
  Report Type: Spontaneous
  Country: US (occurrence: US)
  Receive Date: 20221107
  Receipt Date: 20221215
  Transmission Date: 20230113
  Serious: No
  Sender: FDA-Public Use
  Company Number: US-PFIZER INC-202201245568

PATIENT
  Age: 15 Year
  Sex: Female
  Weight: 44.45 kg

DRUGS (4)
  1. GENOTROPIN [Suspect]
     Active Substance: SOMATROPIN
     Indication: Growth disorder
     Dosage: 2 MG, 1X/DAY (EVERY NIGHT)
     Dates: end: 20221019
  2. FOCALIN XR [Concomitant]
     Active Substance: DEXMETHYLPHENIDATE HYDROCHLORIDE
     Indication: Attention deficit hyperactivity disorder
     Dosage: 20 MG, 1X/DAY
  3. FOCALIN XR [Concomitant]
     Active Substance: DEXMETHYLPHENIDATE HYDROCHLORIDE
     Indication: Oppositional defiant disorder
  4. BUSPIRONE [Concomitant]
     Active Substance: BUSPIRONE HYDROCHLORIDE
     Indication: Anxiety
     Dosage: 15 MG, 2X/DAY

REACTIONS (4)
  - Poor quality device used [Unknown]
  - Device information output issue [Unknown]
  - Device malfunction [Unknown]
  - Device physical property issue [Unknown]

NARRATIVE: CASE EVENT DATE: 20221018
